FAERS Safety Report 7158833-7 (Version None)
Quarter: 2010Q4

REPORT INFORMATION
  Report Type: 
  Country: None (occurrence: None)
  Receive Date: 20101214
  Receipt Date: 20100708
  Transmission Date: 20110411
  Serious: No
  Sender: FDA-Public Use
  Company Number: US-ASTRAZENECA-2010SE31890

PATIENT
  Age: 24976 Day
  Sex: Female
  Weight: 76.7 kg

DRUGS (1)
  1. CRESTOR [Suspect]
     Route: 048
     Dates: start: 20091015

REACTIONS (2)
  - ASTHENIA [None]
  - DRUG DOSE OMISSION [None]
